FAERS Safety Report 5775265-4 (Version None)
Quarter: 2008Q2

REPORT INFORMATION
  Report Type: 
  Country: None (occurrence: None)
  Receive Date: 20080616
  Receipt Date: 20080616
  Transmission Date: 20081010
  Serious: Yes (Hospitalization)
  Sender: FDA-Public Use
  Company Number: None

PATIENT
  Sex: Female
  Weight: 50.8 kg

DRUGS (3)
  1. CISPLATIN [Suspect]
     Dosage: 70 MG
  2. DOXORUBICIN HYDROCHLORIDE [Suspect]
     Dosage: 63 MG
  3. TAXOL [Suspect]
     Dosage: 224 MG

REACTIONS (12)
  - DEHYDRATION [None]
  - DIARRHOEA [None]
  - FEBRILE NEUTROPENIA [None]
  - HEART RATE INCREASED [None]
  - HYPOCALCAEMIA [None]
  - HYPOTENSION [None]
  - NAUSEA [None]
  - RENAL FAILURE ACUTE [None]
  - SEPTIC SHOCK [None]
  - TREATMENT NONCOMPLIANCE [None]
  - URINARY TRACT INFECTION [None]
  - VOMITING [None]
